FAERS Safety Report 5108848-5 (Version None)
Quarter: 2006Q3

REPORT INFORMATION
  Report Type: 
  Country: None (occurrence: None)
  Receive Date: 20060915
  Receipt Date: 20060915
  Transmission Date: 20061208
  Serious: Yes (Other)
  Sender: FDA-Public Use
  Company Number: None

PATIENT
  Age: 55 Year
  Sex: Female
  Weight: 52.6173 kg

DRUGS (2)
  1. GENERIC PAXIL [Suspect]
     Indication: ANXIETY
     Dosage: 1  40 MG. TAB   3X DAILY   PO
     Route: 048
     Dates: start: 20060828, end: 20060828
  2. GENERIC PAXIL [Suspect]
     Indication: DEPRESSION
     Dosage: 1  40 MG. TAB   3X DAILY   PO
     Route: 048
     Dates: start: 20060828, end: 20060828

REACTIONS (8)
  - ADVERSE DRUG REACTION [None]
  - ANXIETY [None]
  - CONDITION AGGRAVATED [None]
  - CRYING [None]
  - DEPRESSION [None]
  - OBSESSIVE THOUGHTS [None]
  - SUICIDAL IDEATION [None]
  - TIC [None]
